FAERS Safety Report 14244336 (Version 1)
Quarter: 2017Q4

REPORT INFORMATION
  Report Type: Spontaneous
  Country: JP (occurrence: JP)
  Receive Date: 20171201
  Receipt Date: 20171201
  Transmission Date: 20180321
  Serious: Yes (Death, Hospitalization)
  Sender: FDA-Public Use
  Company Number: JP-LUNDBECK-DKLU2029417

PATIENT
  Age: 21 Month
  Sex: Male

DRUGS (2)
  1. CARBAMAZEPINE. [Concomitant]
     Active Substance: CARBAMAZEPINE
     Indication: PRODUCT USED FOR UNKNOWN INDICATION
     Route: 065
     Dates: start: 20161209, end: 20171119
  2. SABRIL [Suspect]
     Active Substance: VIGABATRIN
     Indication: INFANTILE SPASMS
     Route: 048
     Dates: start: 20161209, end: 20171119

REACTIONS (3)
  - Seizure [Fatal]
  - Status epilepticus [Recovered/Resolved]
  - Retinogram abnormal [Unknown]

NARRATIVE: CASE EVENT DATE: 20170408
